FAERS Safety Report 15773038 (Version 1)
Quarter: 2018Q4

REPORT INFORMATION
  Report Type: Spontaneous
  Country: US (occurrence: US)
  Receive Date: 20181228
  Receipt Date: 20181228
  Transmission Date: 20190205
  Serious: No
  Sender: FDA-Public Use
  Company Number: US-GE HEALTHCARE LIFE SCIENCES-2018CSU004309

PATIENT
  Age: 43 Year
  Sex: Female
  Weight: 63.49 kg

DRUGS (5)
  1. OMNIPAQUE [Suspect]
     Active Substance: IOHEXOL
     Indication: COLORECTAL CANCER
     Dosage: 146 ML, SINGLE
     Route: 042
     Dates: start: 20181017, end: 20181017
  2. DULCOLAX (BISACODYL) [Concomitant]
     Active Substance: BISACODYL
     Dosage: 5 MG, UNK
     Route: 048
     Dates: start: 20180313
  3. FERROUS SULFATE. [Concomitant]
     Active Substance: FERROUS SULFATE
     Dosage: 324 MG (65 MG IRON), UNK
     Route: 048
     Dates: start: 20180321
  4. NUPERCAINAL                        /00164101/ [Concomitant]
     Dosage: UNK
     Dates: start: 20180921
  5. FLEET ENEMA [Concomitant]
     Active Substance: SODIUM PHOSPHATE, DIBASIC\SODIUM PHOSPHATE, MONOBASIC
     Dosage: UNK
     Route: 054
     Dates: start: 20181005

REACTIONS (2)
  - Pruritus [Recovered/Resolved]
  - Urticaria [Recovered/Resolved]

NARRATIVE: CASE EVENT DATE: 20181017
